FAERS Safety Report 23090092 (Version 2)
Quarter: 2023Q4

REPORT INFORMATION
  Report Type: Spontaneous
  Country: SA (occurrence: SA)
  Receive Date: 20231020
  Receipt Date: 20231101
  Transmission Date: 20240110
  Serious: Yes (Other)
  Sender: FDA-Public Use
  Company Number: SA-SA-SAC20231018000287

PATIENT
  Age: 16 Month
  Sex: Female
  Weight: 6.8 kg

DRUGS (1)
  1. CEREZYME [Suspect]
     Active Substance: IMIGLUCERASE
     Indication: Gaucher^s disease
     Dosage: 400 U (400 UNITS VIAL IN 100 ML NS-NORMAL SALINE) (0.5 UNIT/KG/MIN)
     Route: 042
     Dates: start: 20231012

REACTIONS (2)
  - Oxygen saturation decreased [Recovered/Resolved]
  - Hypersensitivity [Unknown]

NARRATIVE: CASE EVENT DATE: 20231012
